FAERS Safety Report 10542944 (Version 4)
Quarter: 2015Q1

REPORT INFORMATION
  Report Type: Spontaneous
  Country: JP (occurrence: JP)
  Receive Date: 20141027
  Receipt Date: 20150209
  Transmission Date: 20150720
  Serious: Yes (Death)
  Sender: FDA-Public Use
  Company Number: JP-009507513-1410JPN013149

PATIENT

DRUGS (3)
  1. TEMODAL [Suspect]
     Active Substance: TEMOZOLOMIDE
     Indication: GLIOBLASTOMA
     Dosage: DAILY DOSE UNKNOWN
     Route: 065
  2. INTERFERON BETA NOS [Concomitant]
     Active Substance: INTERFERON BETA
     Dosage: 3 MIU/BODY EVERY 4 WEEKS DURING ADJUVANT PERIOD
     Route: 065
  3. INTERFERON BETA NOS [Concomitant]
     Active Substance: INTERFERON BETA
     Indication: GLIOBLASTOMA
     Dosage: 3 MIU/BODY, ALTERNATE DAYS DURING RT (INDUCTION) PERIOD AND DAY 1
     Route: 042

REACTIONS (1)
  - Death [Fatal]
